FAERS Safety Report 15714334 (Version 2)
Quarter: 2019Q1

REPORT INFORMATION
  Report Type: Spontaneous
  Country: US (occurrence: US)
  Receive Date: 20181212
  Receipt Date: 20190225
  Transmission Date: 20190417
  Serious: Yes (Other)
  Sender: FDA-Public Use
  Company Number: US-SA-2018SA334660

PATIENT
  Age: 53 Year
  Sex: Female
  Weight: 63.5 kg

DRUGS (19)
  1. TAXOTERE [Suspect]
     Active Substance: DOCETAXEL
     Indication: BREAST CANCER FEMALE
     Dosage: 136.6 MG, Q3W
     Route: 042
     Dates: start: 20140729, end: 20140729
  2. ANCEF [Concomitant]
     Active Substance: CEFAZOLIN SODIUM
     Dosage: UNK UNK, 1X
     Route: 042
     Dates: start: 20140722, end: 20140722
  3. SUBLIMAZE [FENTANYL] [Concomitant]
     Dosage: UNK
     Dates: start: 20140722, end: 20140722
  4. DECADRON [Concomitant]
     Active Substance: DEXAMETHASONE
     Dosage: 2 DF ON DAY
     Dates: start: 20140716, end: 20141022
  5. HEPARIN [Concomitant]
     Active Substance: HEPARIN SODIUM
     Dosage: UNK
     Dates: start: 20140722, end: 20140722
  6. AMBIEN [Concomitant]
     Active Substance: ZOLPIDEM TARTRATE
     Dosage: 1 DF, HS
     Route: 048
     Dates: start: 20140729, end: 20140729
  7. COLACE [Concomitant]
     Active Substance: DOCUSATE SODIUM
     Dosage: 1 DF, BID
     Route: 048
     Dates: start: 20140625, end: 20140725
  8. KEFLEX [Concomitant]
     Active Substance: CEPHALEXIN
     Dosage: 1 DF, Q12H
     Dates: start: 20140701, end: 20141003
  9. ROBAXIN [Concomitant]
     Active Substance: METHOCARBAMOL
     Dosage: 1 DF, TID
     Route: 048
  10. TAXOTERE [Suspect]
     Active Substance: DOCETAXEL
     Dosage: 136.6 MG, Q3W
     Route: 042
     Dates: start: 20141112, end: 20141112
  11. PARAPLATIN [Concomitant]
     Active Substance: CARBOPLATIN
  12. ZOFRAN [Concomitant]
     Active Substance: ONDANSETRON HYDROCHLORIDE
     Dosage: 8 MG
     Dates: start: 20140718, end: 20140910
  13. COMPAZINE [Concomitant]
     Active Substance: PROCHLORPERAZINE MALEATE
     Dosage: 1 DF, Q6H
     Route: 048
     Dates: start: 20140716, end: 20141203
  14. SENOKOT [Concomitant]
     Active Substance: SENNOSIDES
     Dosage: 1 DF, BID
     Dates: start: 20140625, end: 20140725
  15. AMITRIPTYLINE [Concomitant]
     Active Substance: AMITRIPTYLINE
     Dosage: 20 MG
     Route: 048
  16. ROXICODONE [Concomitant]
     Active Substance: OXYCODONE HYDROCHLORIDE
     Dosage: 1 DF, Q6H
     Dates: start: 20140710, end: 20141204
  17. ROXICET [Concomitant]
     Active Substance: ACETAMINOPHEN\OXYCODONE HYDROCHLORIDE
     Dosage: 1 DF, Q6H
     Route: 048
     Dates: start: 20140625, end: 20141215
  18. VERSED [Concomitant]
     Active Substance: MIDAZOLAM HYDROCHLORIDE
     Dosage: UNK
     Dates: start: 20140722, end: 20140722
  19. HERCEPTIN [Concomitant]
     Active Substance: TRASTUZUMAB
     Dosage: 565.4 MG, 1X
     Route: 042
     Dates: start: 20140729, end: 20140729

REACTIONS (1)
  - Alopecia [Recovering/Resolving]

NARRATIVE: CASE EVENT DATE: 201407
